FAERS Safety Report 13406722 (Version 2)
Quarter: 2018Q1

REPORT INFORMATION
  Report Type: Spontaneous
  Country: US (occurrence: US)
  Receive Date: 20170405
  Receipt Date: 20180117
  Transmission Date: 20180508
  Serious: No
  Sender: FDA-Public Use
  Company Number: US-BRISTOL-MYERS SQUIBB COMPANY-BMS-2017-027296

PATIENT
  Age: 48 Year
  Sex: Male
  Weight: 100 kg

DRUGS (1)
  1. NULOJIX [Suspect]
     Active Substance: BELATACEPT
     Indication: KIDNEY TRANSPLANT REJECTION
     Dosage: 5 MG/KG, UNK
     Route: 058

REACTIONS (3)
  - Product use issue [Unknown]
  - Peripheral swelling [Unknown]
  - Injection [Unknown]

NARRATIVE: CASE EVENT DATE: 20170328
